FAERS Safety Report 25725572 (Version 1)
Quarter: 2025Q3

REPORT INFORMATION
  Report Type: Spontaneous
  Country: US (occurrence: US)
  Receive Date: 20250826
  Receipt Date: 20250826
  Transmission Date: 20251020
  Serious: Yes (Other)
  Sender: CSL BEHRING
  Company Number: US-BEH-2025215143

PATIENT
  Age: 40 Year
  Sex: Male

DRUGS (2)
  1. ANDEMBRY [Suspect]
     Active Substance: GARADACIMAB-GXII
     Indication: Hereditary angioedema
     Dosage: 200 MG, QMT
     Route: 058
  2. ANDEMBRY [Suspect]
     Active Substance: GARADACIMAB-GXII
     Dosage: 200 INJECTION,  BIW
     Route: 065
     Dates: start: 20250728

REACTIONS (4)
  - Hereditary angioedema [Not Recovered/Not Resolved]
  - Drug ineffective [Not Recovered/Not Resolved]
  - Inappropriate schedule of product administration [Unknown]
  - Inappropriate schedule of product administration [Unknown]
